FAERS Safety Report 5793465-4 (Version None)
Quarter: 2008Q2

REPORT INFORMATION
  Report Type: 
  Country: None (occurrence: None)
  Receive Date: 20080627
  Receipt Date: 20080616
  Transmission Date: 20081010
  Serious: Yes (Hospitalization)
  Sender: FDA-Public Use
  Company Number: FR-JNJFOC-20080603542

PATIENT
  Age: 75 Year
  Sex: Male

DRUGS (4)
  1. OFLOCET [Suspect]
     Indication: SEPTIC SHOCK
     Route: 042
  2. ROCEPHIN [Suspect]
     Indication: SEPTIC SHOCK
     Route: 042
  3. NEXIUM [Suspect]
     Indication: DRUG USE FOR UNKNOWN INDICATION
     Route: 048
  4. SOLU-MEDROL [Suspect]
     Indication: DRUG USE FOR UNKNOWN INDICATION
     Route: 042

REACTIONS (2)
  - RASH MACULO-PAPULAR [None]
  - TOXIC SKIN ERUPTION [None]
